FAERS Safety Report 4994991-8 (Version None)
Quarter: 2006Q2

REPORT INFORMATION
  Report Type: 
  Country: None (occurrence: None)
  Receive Date: 20060503
  Receipt Date: 20060420
  Transmission Date: 20061013
  Serious: Yes (Hospitalization)
  Sender: FDA-Public Use
  Company Number: ENT 2006-0055

PATIENT
  Age: 76 Year
  Sex: Male

DRUGS (7)
  1. COMTAN [Suspect]
     Indication: PARKINSON'S DISEASE
     Dosage: SEE IMAGE
     Route: 048
     Dates: end: 20060406
  2. COMTAN [Suspect]
     Indication: PARKINSON'S DISEASE
     Dosage: SEE IMAGE
     Route: 048
     Dates: start: 20060408
  3. ANAESTHETICS [Suspect]
     Indication: PROSTATIC OPERATION
  4. MODOPAR [Suspect]
     Indication: PARKINSON'S DISEASE
     Dosage: 37.5/150 MG ORAL
     Route: 048
     Dates: end: 20060406
  5. MODOPAR [Suspect]
     Indication: PARKINSON'S DISEASE
     Dosage: 37.5/150 MG ORAL
     Route: 048
     Dates: start: 20060408
  6. SELEGILINE HCL [Suspect]
     Indication: PARKINSON'S DISEASE
     Dosage: ORAL
     Route: 048
     Dates: end: 20060406
  7. SELEGILINE HCL [Suspect]
     Indication: PARKINSON'S DISEASE
     Dosage: ORAL
     Route: 048
     Dates: start: 20060408

REACTIONS (5)
  - AGGRESSION [None]
  - AGITATION [None]
  - CONFUSIONAL STATE [None]
  - DRUG INTERACTION [None]
  - PROSTATIC OPERATION [None]
